FAERS Safety Report 14302630 (Version 1)
Quarter: 2017Q4

REPORT INFORMATION
  Report Type: Spontaneous
  Country: US (occurrence: US)
  Receive Date: 20171219
  Receipt Date: 20171219
  Transmission Date: 20180321
  Serious: No
  Sender: FDA-Public Use
  Company Number: US-PARI RESPIRATORY EQUIPMENT, INC.-2017PAR00029

PATIENT
  Age: 21 Year
  Sex: Female

DRUGS (1)
  1. KITABIS PAK [Suspect]
     Active Substance: TOBRAMYCIN
     Indication: CYSTIC FIBROSIS
     Dosage: UNK, 2X/DAY
     Route: 048
     Dates: start: 20170919, end: 20170921

REACTIONS (2)
  - Cough [Unknown]
  - Bronchospasm [Unknown]

NARRATIVE: CASE EVENT DATE: 20170919
